FAERS Safety Report 8827346 (Version 1)
Quarter: 2012Q4

REPORT INFORMATION
  Report Type: 
  Country: US (occurrence: US)
  Receive Date: 20121005
  Receipt Date: 20121005
  Transmission Date: 20130627
  Serious: No
  Sender: FDA-Public Use
  Company Number: US-BRISTOL-MYERS SQUIBB COMPANY-16082190

PATIENT
  Age: 87 Year
  Sex: Male
  Weight: 70 kg

DRUGS (5)
  1. AVAPRO [Suspect]
     Dosage: Started 2 months ago
  2. HYDROCHLOROTHIAZIDE [Suspect]
     Dosage: Received few months ago
  3. PROPRANOLOL [Concomitant]
  4. LOPRESSOR [Concomitant]
  5. AVALIDE [Concomitant]
     Dosage: Received for 10 yrs
started again in Sep2011

REACTIONS (1)
  - Drug ineffective [Unknown]
